FAERS Safety Report 8541941-3 (Version None)
Quarter: 2012Q3

REPORT INFORMATION
  Report Type: 
  Country: None (occurrence: None)
  Receive Date: 20120726
  Receipt Date: 20120720
  Transmission Date: 20120928
  Serious: Yes (Hospitalization)
  Sender: FDA-Public Use
  Company Number: US-B.I. PHARMACEUTICALS,INC./RIDGEFIELD-2012-BP-16243BP

PATIENT
  Sex: Male
  Weight: 112 kg

DRUGS (5)
  1. RHYTHMOL ER [Concomitant]
     Indication: ATRIAL FIBRILLATION
     Dosage: 650 MG
     Route: 048
     Dates: start: 20100101, end: 20120707
  2. PRADAXA [Suspect]
     Indication: ATRIAL FIBRILLATION
     Dosage: 300 MG
     Route: 048
     Dates: start: 20101101, end: 20120707
  3. METOPROLOL SUCCINATE [Concomitant]
     Indication: BLOOD PRESSURE
     Dosage: 12.5 MG
     Route: 048
     Dates: start: 20070101
  4. LISINOPRIL [Concomitant]
     Indication: BLOOD PRESSURE
     Dosage: 20 MG
     Route: 048
     Dates: start: 20070101
  5. OCCUVITE [Concomitant]
     Indication: VITAMIN SUPPLEMENTATION
     Route: 048
     Dates: start: 20110701

REACTIONS (3)
  - ASTHENIA [None]
  - ANTICOAGULATION DRUG LEVEL BELOW THERAPEUTIC [None]
  - ARRHYTHMIA [None]
